FAERS Safety Report 4962408-5 (Version None)
Quarter: 2006Q1

REPORT INFORMATION
  Report Type: 
  Country: None (occurrence: None)
  Receive Date: 20060329
  Receipt Date: 20060321
  Transmission Date: 20060701
  Serious: Yes (Death)
  Sender: FDA-Public Use
  Company Number: 2006S1002485

PATIENT
  Age: 78 Year
  Sex: Female
  Weight: 54.4316 kg

DRUGS (12)
  1. DURAGESIC-100 [Suspect]
     Indication: RHEUMATOID ARTHRITIS
     Dosage: 100 UG/HR; Q3D; TRANS
     Dates: start: 20000101, end: 20060201
  2. FENTANYL TRANSDERMAL SYSTEM [Suspect]
     Indication: RHEUMATOID ARTHRITIS
     Dosage: 100 UG/HR; Q3D; TRANS
     Dates: start: 20060201, end: 20060220
  3. FENTANYL TRANSDERMAL SYSTEM [Suspect]
     Indication: RHEUMATOID ARTHRITIS
     Dosage: 75 UG/HR; X1; TRANS
     Dates: start: 20060220, end: 20060221
  4. TRAMADOL HCL [Concomitant]
  5. FERROUS SULFATE TAB [Concomitant]
  6. DIGOXIN [Concomitant]
  7. LEVOTHYROXINE SODIUM [Concomitant]
  8. PANTOPRAZOLE [Concomitant]
  9. POTASSIUM CHLORIDE [Concomitant]
  10. VENLAFAXINE [Concomitant]
  11. TEGASEROD [Concomitant]
  12. MACROGOL [Concomitant]

REACTIONS (9)
  - ANOREXIA [None]
  - DEEP VEIN THROMBOSIS [None]
  - DYSPNOEA [None]
  - INTRACARDIAC THROMBUS [None]
  - LETHARGY [None]
  - MYOCARDIAL INFARCTION [None]
  - PULMONARY THROMBOSIS [None]
  - RESPIRATORY RATE DECREASED [None]
  - SOMNOLENCE [None]
